FAERS Safety Report 16812020 (Version 1)
Quarter: 2019Q3

REPORT INFORMATION
  Report Type: Spontaneous
  Country: US (occurrence: US)
  Receive Date: 20190916
  Receipt Date: 20190916
  Transmission Date: 20191005
  Serious: No
  Sender: FDA-Public Use
  Company Number: US-AMGEN-USASP2017069523

PATIENT
  Age: 77 Year
  Sex: Male

DRUGS (2)
  1. TALIMOGENE LAHERPAREPVEC [Suspect]
     Active Substance: TALIMOGENE LAHERPAREPVEC
     Indication: NEUROENDOCRINE CARCINOMA OF THE SKIN
     Dosage: 1 ML OF 10^6 PFU/ML
     Route: 065
     Dates: start: 20160219
  2. TALIMOGENE LAHERPAREPVEC [Suspect]
     Active Substance: TALIMOGENE LAHERPAREPVEC
     Dosage: MAINTENANCE DOSES OF 1 TO 2 ML OF 108 PFU/ML AT 2-WEEK INTERVALS ON 7 OCCASIONS
     Route: 065
     Dates: start: 20160318

REACTIONS (4)
  - Nausea [Unknown]
  - Fatigue [Unknown]
  - Injection site pain [Recovered/Resolved]
  - Off label use [Unknown]

NARRATIVE: CASE EVENT DATE: 2016
